FAERS Safety Report 22324441 (Version 1)
Quarter: 2023Q2

REPORT INFORMATION
  Report Type: Spontaneous
  Country: US (occurrence: US)
  Receive Date: 20230516
  Receipt Date: 20230516
  Transmission Date: 20230721
  Serious: Yes (Hospitalization, Other)
  Sender: FDA-Public Use
  Company Number: US-ROCHE-2238001

PATIENT
  Sex: Female
  Weight: 59.928 kg

DRUGS (12)
  1. VALGANCICLOVIR HYDROCHLORIDE [Suspect]
     Active Substance: VALGANCICLOVIR HYDROCHLORIDE
     Indication: Renal transplant
     Dosage: BID
     Route: 048
     Dates: start: 20110502, end: 20110502
  2. CELLCEPT [Suspect]
     Active Substance: MYCOPHENOLATE MOFETIL
     Indication: Renal transplant
     Dosage: BID
     Route: 048
     Dates: start: 20121002
  3. ROCALTROL [Concomitant]
     Active Substance: CALCITRIOL
     Route: 048
     Dates: start: 20180818
  4. CHOLESTYRAMINE [Concomitant]
     Active Substance: CHOLESTYRAMINE
     Dosage: 1 SPOON 1 A DAY AS NEEDED.
     Dates: start: 20170522
  5. LIPITOR [Concomitant]
     Active Substance: ATORVASTATIN CALCIUM
     Route: 048
  6. NORVASC [Concomitant]
     Active Substance: AMLODIPINE BESYLATE
     Dosage: EVERY NIGHT
  7. NORVASC [Concomitant]
     Active Substance: AMLODIPINE BESYLATE
     Dosage: DAILY DOSE: 10 MILLIGRAM
     Route: 048
  8. PROGRAF [Concomitant]
     Active Substance: TACROLIMUS
     Dosage: BID?DAILY DOSE: 2 MILLIGRAM
     Route: 048
     Dates: start: 20121108
  9. PROLIA [Concomitant]
     Active Substance: DENOSUMAB
     Dosage: 60MG/ML
  10. VITAMIN D3 [Concomitant]
     Active Substance: CHOLECALCIFEROL
     Dosage: BID, 1000 UNIT
     Route: 048
  11. CARVEDILOL [Concomitant]
     Active Substance: CARVEDILOL
     Dosage: BID?DAILY DOSE: 50 MILLIGRAM
     Route: 048
     Dates: start: 20181003
  12. PREDNISONE [Concomitant]
     Active Substance: PREDNISONE
     Dosage: EVERY MORNING?DAILY DOSE: 5 MILLIGRAM
     Dates: start: 20180312

REACTIONS (17)
  - Leukopenia [Recovered/Resolved]
  - Pyelonephritis [Recovered/Resolved]
  - Deafness [Unknown]
  - Diverticulitis [Unknown]
  - Headache [Unknown]
  - Dyspnoea exertional [Unknown]
  - Diarrhoea [Unknown]
  - Dyspepsia [Unknown]
  - Swelling [Unknown]
  - Pain [Unknown]
  - Abdominal pain [Unknown]
  - Cough [Unknown]
  - Fatigue [Unknown]
  - Dizziness [Unknown]
  - Paraesthesia [Unknown]
  - Malaise [Unknown]
  - Nasopharyngitis [Unknown]
